FAERS Safety Report 8598349-4 (Version None)
Quarter: 2012Q3

REPORT INFORMATION
  Report Type: 
  Country: None (occurrence: None)
  Receive Date: 20120816
  Receipt Date: 20120803
  Transmission Date: 20120928
  Serious: Yes (Hospitalization)
  Sender: FDA-Public Use
  Company Number: US-ELI_LILLY_AND_COMPANY-US201208001964

PATIENT
  Sex: Female

DRUGS (2)
  1. LANTUS [Concomitant]
     Indication: TYPE 2 DIABETES MELLITUS
  2. HUMALOG [Suspect]
     Indication: TYPE 2 DIABETES MELLITUS
     Dosage: 20 U, TID
     Dates: start: 20100101

REACTIONS (2)
  - SPEECH DISORDER [None]
  - CEREBROVASCULAR ACCIDENT [None]
